FAERS Safety Report 8818919 (Version 2)
Quarter: 2012Q4

REPORT INFORMATION
  Report Type: Spontaneous
  Country: KR (occurrence: None)
  Receive Date: 20121002
  Receipt Date: 20121016
  Transmission Date: 20130627
  Serious: Yes (Other)
  Sender: FDA-Public Use
  Company Number: FK201202819

PATIENT
  Age: 65 Year
  Sex: Female

DRUGS (1)
  1. CEFTRIAXONE [Suspect]
     Indication: URINARY TRACT INFECTION
     Dosage: Intravenous (not otherwise specified)
     Route: 042

REACTIONS (11)
  - Neurotoxicity [None]
  - Altered state of consciousness [None]
  - Electroencephalogram abnormal [None]
  - Stupor [None]
  - Myoclonus [None]
  - Haemodialysis [None]
  - Azotaemia [None]
  - Vena cava thrombosis [None]
  - Renal vein thrombosis [None]
  - Ovarian vein thrombosis [None]
  - Pelvic venous thrombosis [None]
